FAERS Safety Report 24074192 (Version 1)
Quarter: 2024Q3

REPORT INFORMATION
  Report Type: Spontaneous
  Country: US (occurrence: US)
  Receive Date: 20240710
  Receipt Date: 20240710
  Transmission Date: 20241017
  Serious: No
  Sender: PIERRE FABRE MEDICAMENT
  Company Number: US-PFM-2024-01687

PATIENT
  Age: 1 Year
  Sex: Male
  Weight: 5.97 kg

DRUGS (1)
  1. HEMANGEOL [Suspect]
     Active Substance: PROPRANOLOL HYDROCHLORIDE
     Indication: Haemangioma
     Dosage: 2.3 ML, BID (2/DAY)
     Route: 048
     Dates: start: 20240216

REACTIONS (1)
  - Peripheral coldness [Unknown]

NARRATIVE: CASE EVENT DATE: 20240216
